FAERS Safety Report 20521515 (Version 4)
Quarter: 2023Q4

REPORT INFORMATION
  Report Type: Spontaneous
  Country: JP (occurrence: JP)
  Receive Date: 20220226
  Receipt Date: 20231007
  Transmission Date: 20240110
  Serious: Yes (Other)
  Sender: FDA-Public Use
  Company Number: JP-UNITED THERAPEUTICS-UNT-2022-001074

PATIENT
  Age: 7 Year
  Sex: Male
  Weight: 17.6 kg

DRUGS (16)
  1. UNITUXIN [Suspect]
     Active Substance: DINUTUXIMAB
     Indication: Neuroblastoma
     Dosage: 17.5 MG/M2, CYCLICAL (CYCLE 1)
     Route: 041
     Dates: start: 20220110, end: 20220113
  2. UNITUXIN [Suspect]
     Active Substance: DINUTUXIMAB
     Dosage: 17.5 MG/M2, CYCLICAL (CYCLE 2)
     Route: 041
     Dates: start: 20220214, end: 20220217
  3. UNITUXIN [Suspect]
     Active Substance: DINUTUXIMAB
     Dosage: 17.5 MG/M2, CYCLICAL (CYCLE 3)
     Route: 041
     Dates: start: 20220314, end: 20220317
  4. UNITUXIN [Suspect]
     Active Substance: DINUTUXIMAB
     Dosage: 17.5 MG/M2, CYCLICAL (CYCLE 4)
     Route: 041
     Dates: start: 20220418, end: 20220421
  5. UNITUXIN [Suspect]
     Active Substance: DINUTUXIMAB
     Dosage: 17.5 MG/M2, CYCLICAL (CYCLE 5)
     Route: 041
     Dates: start: 20220516, end: 20220519
  6. UNITUXIN [Suspect]
     Active Substance: DINUTUXIMAB
     Dosage: 17.5 MG/M2, CYCLICAL (CYCLE 6)
     Route: 041
     Dates: start: 20220620, end: 20220623
  7. TECELEUKIN [Suspect]
     Active Substance: TECELEUKIN
     Indication: Neuroblastoma
     Dosage: 750,000 UNITS/M2, CYCLICAL (CYCLE 1)
     Route: 065
     Dates: start: 20220207, end: 20220210
  8. TECELEUKIN [Suspect]
     Active Substance: TECELEUKIN
     Dosage: 750,000 UNITS/M2, CYCLICAL (CYCLE 2)
     Route: 065
     Dates: start: 20220411, end: 20220414
  9. TECELEUKIN [Suspect]
     Active Substance: TECELEUKIN
     Dosage: 1,000,000 UNITS/M2, CYCLICAL (CYCLE 3)
     Route: 065
     Dates: start: 20220620, end: 20220623
  10. FILGRASTIM [Concomitant]
     Active Substance: FILGRASTIM
     Indication: Neuroblastoma
     Dosage: 4.2 MICROGRAM/KILOGRAM/DAY
     Route: 065
     Dates: start: 20220110, end: 20220113
  11. FILGRASTIM [Concomitant]
     Active Substance: FILGRASTIM
     Dosage: 4.2 MICROGRAM/KILOGRAM/DAY (CYCLE 3)
     Route: 065
     Dates: start: 20220311, end: 20220324
  12. FILGRASTIM [Concomitant]
     Active Substance: FILGRASTIM
     Dosage: 4.4 MICROGRAM/KILOGRAM/DAY
     Route: 065
     Dates: start: 20220516, end: 20220519
  13. MORPHINE HYDROCHLORIDE [Concomitant]
     Active Substance: MORPHINE HYDROCHLORIDE
     Indication: Prophylaxis
     Dosage: UNK
     Route: 065
     Dates: start: 20220110, end: 20220113
  14. MORPHINE HYDROCHLORIDE [Concomitant]
     Active Substance: MORPHINE HYDROCHLORIDE
     Dosage: UNK
     Route: 065
     Dates: start: 20220214, end: 20220217
  15. MORPHINE HYDROCHLORIDE [Concomitant]
     Active Substance: MORPHINE HYDROCHLORIDE
     Dosage: UNK
     Route: 065
     Dates: start: 20220314, end: 20220317
  16. MORPHINE HYDROCHLORIDE [Concomitant]
     Active Substance: MORPHINE HYDROCHLORIDE
     Dosage: UNK
     Route: 065
     Dates: start: 20220418, end: 20220421

REACTIONS (38)
  - Urinary retention [Recovered/Resolved]
  - Hypogammaglobulinaemia [Unknown]
  - Hypogammaglobulinaemia [Unknown]
  - Abdominal pain [Recovered/Resolved]
  - Pyrexia [Recovered/Resolved]
  - Hypoxia [Recovered/Resolved]
  - Blood pressure decreased [Recovered/Resolved]
  - Weight increased [Recovered/Resolved]
  - Vomiting [Recovered/Resolved]
  - Tachycardia [Recovered/Resolved]
  - Blood creatine phosphokinase increased [Recovered/Resolved]
  - Face oedema [Not Recovered/Not Resolved]
  - Urticaria [Recovered/Resolved]
  - Hypoalbuminaemia [Unknown]
  - Aspartate aminotransferase increased [Unknown]
  - Platelet count decreased [Recovering/Resolving]
  - Petechiae [Recovering/Resolving]
  - Urine output decreased [Unknown]
  - Blood immunoglobulin G decreased [Unknown]
  - Oedema [Unknown]
  - Blood albumin decreased [Unknown]
  - Face oedema [Recovering/Resolving]
  - Face oedema [Unknown]
  - Tachycardia [Not Recovered/Not Resolved]
  - Urticaria [Unknown]
  - Hypoalbuminaemia [Unknown]
  - Weight increased [Not Recovered/Not Resolved]
  - Weight increased [Recovering/Resolving]
  - Weight increased [Unknown]
  - Blood pressure decreased [Recovered/Resolved]
  - Blood pressure decreased [Recovered/Resolved]
  - Blood pressure decreased [Unknown]
  - Pyrexia [Recovered/Resolved]
  - Pyrexia [Recovered/Resolved]
  - Pyrexia [Recovered/Resolved]
  - Oedema [Recovered/Resolved]
  - Weight increased [Recovered/Resolved]
  - Oedema [Recovered/Resolved]

NARRATIVE: CASE EVENT DATE: 20220101
